FAERS Safety Report 24464013 (Version 1)
Quarter: 2024Q4

REPORT INFORMATION
  Report Type: Report from Study
  Country: US (occurrence: US)
  Receive Date: 20241018
  Receipt Date: 20241018
  Transmission Date: 20250114
  Serious: No
  Sender: ROCHE
  Company Number: US-ROCHE-3470320

PATIENT
  Age: 64 Year
  Sex: Female

DRUGS (7)
  1. XOLAIR [Suspect]
     Active Substance: OMALIZUMAB
     Indication: Idiopathic urticaria
     Route: 058
  2. XOLAIR [Suspect]
     Active Substance: OMALIZUMAB
  3. ZYRTEC [Concomitant]
     Active Substance: CETIRIZINE HYDROCHLORIDE
  4. DOXEPIN [Concomitant]
     Active Substance: DOXEPIN
  5. VALSARTAN [Concomitant]
     Active Substance: VALSARTAN
  6. ESTRADIOL [Concomitant]
     Active Substance: ESTRADIOL
  7. PEPCID [Concomitant]
     Active Substance: FAMOTIDINE

REACTIONS (3)
  - Off label use [Unknown]
  - No adverse event [Unknown]
  - Off label use [Unknown]
